FAERS Safety Report 6551781-2 (Version None)
Quarter: 2010Q1

REPORT INFORMATION
  Report Type: 
  Country: None (occurrence: None)
  Receive Date: 20100126
  Receipt Date: 20100119
  Transmission Date: 20100710
  Serious: Yes (Hospitalization)
  Sender: FDA-Public Use
  Company Number: DE-ASTRAZENECA-2010SE02411

PATIENT
  Age: 20 Year
  Sex: Male

DRUGS (4)
  1. SEROQUEL [Suspect]
     Route: 048
     Dates: start: 20051112, end: 20051112
  2. ABILIFY [Suspect]
     Route: 065
     Dates: start: 20041215, end: 20050107
  3. LEPONEX [Concomitant]
     Route: 065
     Dates: start: 20050104, end: 20050107
  4. SOLIAN [Concomitant]
     Route: 065
     Dates: start: 20050111, end: 20050201

REACTIONS (2)
  - HEPATIC FUNCTION ABNORMAL [None]
  - TRANSAMINASES INCREASED [None]
